FAERS Safety Report 10957002 (Version 2)
Quarter: 2015Q2

REPORT INFORMATION
  Report Type: Spontaneous
  Country: US (occurrence: US)
  Receive Date: 20150326
  Receipt Date: 20150414
  Transmission Date: 20150821
  Serious: No
  Sender: FDA-Public Use
  Company Number: US-PFIZER INC-2015094202

PATIENT
  Age: 9 Year
  Sex: Female

DRUGS (3)
  1. AZITHROMYCIN [Concomitant]
     Active Substance: AZITHROMYCIN ANHYDROUS
     Indication: PHARYNGITIS STREPTOCOCCAL
     Dosage: (FAILED ALIED)
     Dates: start: 20150312, end: 20150314
  2. SOLU-MEDROL [Suspect]
     Active Substance: METHYLPREDNISOLONE SODIUM SUCCINATE
     Indication: PHARYNGITIS STREPTOCOCCAL
     Dosage: 40MG INTRAMUSCULAR IN THE LEFT DELTOID MUSCLE
     Route: 030
     Dates: start: 20150314
  3. CLINDAMYCIN PRAGRANULE [Concomitant]
     Indication: PHARYNGITIS STREPTOCOCCAL
     Dosage: (JUST GIVEN)
     Dates: start: 20150314

REACTIONS (5)
  - Pain [Unknown]
  - Muscle spasms [Recovered/Resolved]
  - Hyperventilation [Unknown]
  - Tachycardia [Unknown]
  - Arthropathy [Recovered/Resolved]
